FAERS Safety Report 7310440-9 (Version None)
Quarter: 2011Q1

REPORT INFORMATION
  Report Type: 
  Country: None (occurrence: None)
  Receive Date: 20110224
  Receipt Date: 20100927
  Transmission Date: 20110831
  Serious: No
  Sender: FDA-Public Use
  Company Number: US-BRISTOL-MYERS SQUIBB COMPANY-15250194

PATIENT
  Age: 71 Year
  Sex: Female

DRUGS (7)
  1. GLUCOPHAGE [Suspect]
  2. OMEPRAZOLE [Concomitant]
  3. NORTRIPTYLINE [Concomitant]
  4. GLIMEPIRIDE [Concomitant]
  5. DIOVAN [Concomitant]
  6. HYDROCHLOROTHIAZIDE [Concomitant]
  7. GABAPENTIN [Concomitant]

REACTIONS (2)
  - BLOOD GLUCOSE INCREASED [None]
  - DIARRHOEA [None]
